FAERS Safety Report 24091130 (Version 1)
Quarter: 2024Q3

REPORT INFORMATION
  Report Type: Spontaneous
  Country: US (occurrence: None)
  Receive Date: 20240713
  Receipt Date: 20240713
  Transmission Date: 20241017
  Serious: Yes (Other)
  Sender: Public
  Company Number: None

PATIENT
  Age: 66 Year
  Sex: Female
  Weight: 81 kg

DRUGS (2)
  1. FLUTICASONE PROPIONATE [Suspect]
     Active Substance: FLUTICASONE PROPIONATE
     Indication: Hypersensitivity
     Dosage: OTHER STRENGTH : 50 MCG?OTHER QUANTITY : 2 SPRAY(S)?FREQUENCY : AS NEEDED?
     Route: 055
     Dates: start: 20240607, end: 20240607
  2. VITAMIN D [Concomitant]
     Active Substance: VITAMIN D NOS

REACTIONS (1)
  - Hallucination [None]

NARRATIVE: CASE EVENT DATE: 20240607
